FAERS Safety Report 10208596 (Version 3)
Quarter: 2015Q4

REPORT INFORMATION
  Report Type: Other
  Country: CH (occurrence: CH)
  Receive Date: 20140527
  Receipt Date: 20151201
  Transmission Date: 20160304
  Serious: Yes (Other)
  Sender: FDA-Public Use
  Company Number: CH-ACTELION-A-CH2014-98965

PATIENT
  Age: 8 Year
  Sex: Female
  Weight: 30 kg

DRUGS (3)
  1. ZAVESCA [Suspect]
     Active Substance: MIGLUSTAT
     Indication: NIEMANN-PICK DISEASE
     Dosage: 200 MG, BID
     Route: 048
  2. ZAVESCA [Suspect]
     Active Substance: MIGLUSTAT
     Dosage: 100 MG, QD
     Route: 048
     Dates: start: 20140228
  3. ZAVESCA [Suspect]
     Active Substance: MIGLUSTAT
     Dosage: 50 MG, QD
     Route: 048
     Dates: start: 20140504

REACTIONS (5)
  - Amnesia [Recovered/Resolved]
  - Disorientation [Recovered/Resolved]
  - Gastrointestinal disorder [Recovered/Resolved]
  - Dysphagia [Recovered/Resolved]
  - Confusional state [Recovered/Resolved]

NARRATIVE: CASE EVENT DATE: 20140501
